FAERS Safety Report 25572365 (Version 2)
Quarter: 2025Q3

REPORT INFORMATION
  Report Type: Spontaneous
  Country: JP (occurrence: JP)
  Receive Date: 20250717
  Receipt Date: 20250804
  Transmission Date: 20251020
  Serious: Yes (Other)
  Sender: RECORDATI
  Company Number: JP-ORPHANEU-2025004892

PATIENT
  Age: 67 Year
  Sex: Female

DRUGS (2)
  1. ENJAYMO [Suspect]
     Active Substance: SUTIMLIMAB-JOME
     Indication: Cold type haemolytic anaemia
     Dosage: 6.5 MILLIGRAM/KILOGRAM, QW
     Route: 065
  2. ENJAYMO [Suspect]
     Active Substance: SUTIMLIMAB-JOME
     Indication: Lymphoproliferative disorder
     Dosage: 6.5 MILLIGRAM/KILOGRAM, Q2W
     Route: 065

REACTIONS (3)
  - High-grade B-cell lymphoma [Recovered/Resolved]
  - Drug ineffective for unapproved indication [Recovered/Resolved]
  - Disease progression [Recovered/Resolved]
